FAERS Safety Report 23190951 (Version 1)
Quarter: 2023Q4

REPORT INFORMATION
  Report Type: Spontaneous
  Country: US (occurrence: US)
  Receive Date: 20231116
  Receipt Date: 20231116
  Transmission Date: 20240110
  Serious: No
  Sender: FDA-Public Use
  Company Number: US-TARO PHARMACEUTICALS USA INC.-2023TAR00387

PATIENT

DRUGS (6)
  1. TRIAMCINOLONE [Suspect]
     Active Substance: TRIAMCINOLONE
     Indication: Product used for unknown indication
     Dosage: UNK
     Route: 065
     Dates: start: 20221205
  2. TRIAMCINOLONE [Suspect]
     Active Substance: TRIAMCINOLONE
     Dosage: UNK
     Route: 065
     Dates: start: 20230316
  3. MOMETASONE [Concomitant]
     Active Substance: MOMETASONE
     Indication: Product used for unknown indication
     Dosage: UNK
     Route: 065
     Dates: start: 20230316
  4. Bovine serum albumin [Concomitant]
     Indication: Product used for unknown indication
     Dosage: UNK
     Route: 065
     Dates: start: 20221205
  5. Bovine serum albumin [Concomitant]
     Dosage: UNK
     Route: 065
     Dates: start: 20230316
  6. Cibingo [Concomitant]
     Indication: Product used for unknown indication
     Dosage: UNK, UP TO 200 MG
     Route: 065
     Dates: start: 20221205

REACTIONS (4)
  - Dermatitis atopic [Unknown]
  - Post inflammatory pigmentation change [Unknown]
  - Eczema [Unknown]
  - Rash erythematous [Unknown]
